FAERS Safety Report 7374956-1 (Version None)
Quarter: 2011Q1

REPORT INFORMATION
  Report Type: 
  Country: None (occurrence: None)
  Receive Date: 20110325
  Receipt Date: 20110311
  Transmission Date: 20110831
  Serious: Yes (Hospitalization)
  Sender: FDA-Public Use
  Company Number: PHHO2010US12110

PATIENT
  Sex: Male
  Weight: 123.36 kg

DRUGS (40)
  1. BLINDED ENALAPRIL [Suspect]
     Dosage: CODE NOT BROKEN
     Route: 048
     Dates: start: 20100518, end: 20100723
  2. BLINDED NO TREATMENT RECEIVED [Suspect]
     Dosage: NO TREATMENT
     Dates: start: 20100724, end: 20100728
  3. XYLOCAINE [Concomitant]
  4. HEPARIN [Concomitant]
  5. SODIUM CHLORIDE [Concomitant]
  6. VITAMIN K TAB [Concomitant]
  7. ZAROXOLYN [Concomitant]
  8. NOVOLIN R [Concomitant]
  9. BLINDED ALISKIREN [Suspect]
     Dosage: NO TREATMENT
     Dates: start: 20100724, end: 20100728
  10. ALISKIREN [Suspect]
     Indication: CARDIAC FAILURE
  11. TORSEMIDE [Concomitant]
  12. VITAMIN D [Concomitant]
  13. CAPTOPRIL [Concomitant]
  14. DEMADEX [Concomitant]
  15. ONDANSETRON HYDROCHLORIDE [Concomitant]
  16. FISH OIL [Concomitant]
  17. METOLAZONE [Concomitant]
  18. ACETAMINOPHEN [Concomitant]
  19. BLINDED NO TREATMENT RECEIVED [Suspect]
     Dosage: CODE NOT BROKEN
     Route: 048
     Dates: start: 20100729
  20. CARVEDILOL [Concomitant]
  21. SPIRONOLACTONE [Concomitant]
  22. BLINDED ENALAPRIL [Suspect]
     Dosage: NO TREATMENT
     Dates: start: 20100724, end: 20100728
  23. BLINDED ENALAPRIL [Suspect]
     Dosage: CODE NOT BROKEN
     Route: 048
     Dates: start: 20100729
  24. WARFARIN SODIUM [Concomitant]
  25. AMIODARONE HCL [Concomitant]
  26. NIASPAN [Concomitant]
  27. ISOSORBIDE DINITRATE [Concomitant]
  28. BLINDED ALISKIREN [Suspect]
     Dosage: CODE NOT BROKEN
     Route: 048
     Dates: start: 20100729
  29. MUCOMYST [Concomitant]
  30. ASPIRIN [Concomitant]
  31. LASIX [Concomitant]
  32. DIPHENHYDRAMINE [Concomitant]
  33. HYDRALAZINE HCL [Concomitant]
  34. ASPIRIN [Concomitant]
  35. BLINDED NO TREATMENT RECEIVED [Suspect]
     Dosage: CODE NOT BROKEN
     Route: 048
     Dates: start: 20100518, end: 20100723
  36. COMPARATOR ENALAPRIL [Suspect]
     Indication: CARDIAC FAILURE
  37. BLINDED ALISKIREN [Suspect]
     Dosage: CODE NOT BROKEN
     Route: 048
     Dates: start: 20100518, end: 20100723
  38. COUMADIN [Concomitant]
  39. KLOR-CON [Concomitant]
  40. CRESTOR [Concomitant]

REACTIONS (17)
  - DYSPNOEA [None]
  - DISEASE PROGRESSION [None]
  - BLOOD CREATININE INCREASED [None]
  - ATRIAL FLUTTER [None]
  - CARDIAC FAILURE [None]
  - BRONCHOSPASM [None]
  - CATHETERISATION CARDIAC [None]
  - ATRIAL FIBRILLATION [None]
  - CARDIOVERSION [None]
  - ACUTE RESPIRATORY FAILURE [None]
  - CONCOMITANT DISEASE PROGRESSION [None]
  - BUNDLE BRANCH BLOCK LEFT [None]
  - EJECTION FRACTION DECREASED [None]
  - CHEST PAIN [None]
  - CONDITION AGGRAVATED [None]
  - CORONARY ARTERY DISEASE [None]
  - BLOOD POTASSIUM INCREASED [None]
